FAERS Safety Report 6844722-1 (Version None)
Quarter: 2010Q3

REPORT INFORMATION
  Report Type: 
  Country: None (occurrence: None)
  Receive Date: 20100715
  Receipt Date: 20100712
  Transmission Date: 20110219
  Serious: Yes (Other)
  Sender: FDA-Public Use
  Company Number: FR-BRISTOL-MYERS SQUIBB COMPANY-15124894

PATIENT
  Age: 67 Year
  Sex: Male
  Weight: 97 kg

DRUGS (2)
  1. HYDREA [Suspect]
     Indication: THROMBOCYTOSIS
     Dosage: STARTED IN SEPT/OCT2008;1DF:2 CAPS/DAY AND 3 CAPS/DAY ON ALTERNATE DAYS
     Route: 048
     Dates: start: 20080101
  2. KARDEGIC [Concomitant]
     Dates: start: 20080101

REACTIONS (2)
  - SKIN DISCOLOURATION [None]
  - TYPE 2 DIABETES MELLITUS [None]
